FAERS Safety Report 14745118 (Version 1)
Quarter: 2018Q2

REPORT INFORMATION
  Report Type: Spontaneous
  Country: GB (occurrence: GB)
  Receive Date: 20180411
  Receipt Date: 20180411
  Transmission Date: 20180711
  Serious: Yes (Death)
  Sender: FDA-Public Use
  Company Number: GB-BAUSCH-BL-2018-010515

PATIENT
  Sex: Male

DRUGS (2)
  1. DOXYCYCLINE. [Suspect]
     Active Substance: DOXYCYCLINE
     Dosage: DISPENSED 100 MG MEDICATION IN 50 MG PACKAGING
     Route: 065
     Dates: start: 201202
  2. DOXYCYCLINE. [Suspect]
     Active Substance: DOXYCYCLINE
     Indication: ACNE
     Dosage: OVER A PERIOD OF A YEAR
     Route: 065
     Dates: end: 201108

REACTIONS (4)
  - Malaise [Unknown]
  - Affective disorder [Unknown]
  - Drug dispensing error [Unknown]
  - Completed suicide [Fatal]
